FAERS Safety Report 9126680 (Version 1)
Quarter: 2013Q1

REPORT INFORMATION
  Report Type: Spontaneous
  Country: US (occurrence: US)
  Receive Date: 20130121
  Receipt Date: 20130121
  Transmission Date: 20140127
  Serious: Yes (Other)
  Sender: FDA-Public Use
  Company Number: US-RB-048376-13

PATIENT
  Age: 58 Year
  Sex: Male

DRUGS (7)
  1. MUCINEX DM [Suspect]
     Indication: PRODUCT USED FOR UNKNOWN INDICATION
     Route: 048
     Dates: start: 20121222
  2. MUCINEX DM [Suspect]
  3. LOSARTAN [Concomitant]
     Indication: PRODUCT USED FOR UNKNOWN INDICATION
  4. BABY ASPIRIN [Concomitant]
     Indication: PRODUCT USED FOR UNKNOWN INDICATION
  5. EPLERENONE [Concomitant]
     Indication: PRODUCT USED FOR UNKNOWN INDICATION
  6. COREG [Concomitant]
     Indication: PRODUCT USED FOR UNKNOWN INDICATION
  7. DIGOXIN [Concomitant]
     Indication: PRODUCT USED FOR UNKNOWN INDICATION

REACTIONS (2)
  - Corneal irritation [Not Recovered/Not Resolved]
  - Vision blurred [Recovering/Resolving]
